APPROVED DRUG PRODUCT: OMNIPAQUE 350
Active Ingredient: IOHEXOL
Strength: 75.5%
Dosage Form/Route: SOLUTION;INJECTION, ORAL
Application: N020608 | Product #003
Applicant: GE HEALTHCARE
Approved: Oct 24, 1995 | RLD: No | RS: No | Type: RX